FAERS Safety Report 19837288 (Version 3)
Quarter: 2021Q4

REPORT INFORMATION
  Report Type: Report from Study
  Country: CZ (occurrence: CZ)
  Receive Date: 20210914
  Receipt Date: 20211125
  Transmission Date: 20220304
  Serious: Yes (Hospitalization)
  Sender: FDA-Public Use
  Company Number: CZ-CELGENE-CZE-20210808647

PATIENT
  Age: 52 Year
  Sex: Male
  Weight: 100 kg

DRUGS (15)
  1. POMALYST [Suspect]
     Active Substance: POMALIDOMIDE
     Indication: Plasma cell myeloma
     Dosage: 4 MILLIGRAM
     Route: 048
     Dates: start: 20210811, end: 20210825
  2. DEXAMETHASONE [Suspect]
     Active Substance: DEXAMETHASONE
     Indication: Plasma cell myeloma
     Dosage: 40MG, D 1, 8, 15 AND 22 OF EACH 28 DAY CYCLE
     Route: 048
     Dates: start: 20200604, end: 20201118
  3. DEXAMETHASONE [Suspect]
     Active Substance: DEXAMETHASONE
     Dosage: 40MG
     Route: 048
     Dates: start: 20210203, end: 20210721
  4. DEXAMETHASONE [Suspect]
     Active Substance: DEXAMETHASONE
     Dosage: 40MG
     Route: 048
     Dates: start: 20210811, end: 20210825
  5. VENETOCLAX [Suspect]
     Active Substance: VENETOCLAX
     Indication: Plasma cell myeloma
     Route: 065
  6. VENETOCLAX [Suspect]
     Active Substance: VENETOCLAX
     Dosage: 40MG
     Route: 048
     Dates: start: 20210203, end: 20210721
  7. VENETOCLAX [Suspect]
     Active Substance: VENETOCLAX
     Dosage: 40MG
     Route: 048
     Dates: start: 20210811, end: 20210825
  8. BISEPTOL [Concomitant]
     Active Substance: SULFAMETHOXAZOLE\TRIMETHOPRIM
     Indication: Prophylaxis
     Dosage: 1920 MILLIGRAM
     Route: 048
     Dates: start: 202006
  9. OMEPRAZOLE [Concomitant]
     Active Substance: OMEPRAZOLE
     Indication: Prophylaxis
     Dosage: 40MG
     Route: 048
     Dates: start: 20210203
  10. ELIQUIS [Concomitant]
     Active Substance: APIXABAN
     Indication: Thrombosis prophylaxis
     Dosage: 10MG
     Route: 048
     Dates: start: 20210303, end: 20210824
  11. CALCIUM CARBONATE [Concomitant]
     Active Substance: CALCIUM CARBONATE
     Indication: Osteoporosis prophylaxis
     Dosage: 500 MILLIGRAM
     Route: 048
     Dates: start: 20210203
  12. SYNJARDY [Concomitant]
     Active Substance: EMPAGLIFLOZIN\METFORMIN HYDROCHLORIDE
     Indication: Diabetes mellitus
     Dosage: 5 MILLIGRAM
     Route: 058
     Dates: start: 201701
  13. APO FENO [Concomitant]
     Indication: Gastric ulcer
     Route: 048
     Dates: start: 201701
  14. ROSUVASTATIN [Concomitant]
     Active Substance: ROSUVASTATIN
     Indication: Dyslipidaemia
     Dosage: 20MG
     Route: 065
     Dates: start: 201707
  15. MAGNESIUM CARBONATE\MAGNESIUM OXIDE [Concomitant]
     Active Substance: MAGNESIUM CARBONATE\MAGNESIUM OXIDE
     Indication: Muscle spasms
     Dosage: 1 SOCKET
     Route: 048
     Dates: start: 202006, end: 20210825

REACTIONS (2)
  - Plasma cell myeloma [Recovered/Resolved]
  - Hyperglycaemia [Recovered/Resolved]

NARRATIVE: CASE EVENT DATE: 20210820
